FAERS Safety Report 21450602 (Version 3)
Quarter: 2025Q3

REPORT INFORMATION
  Report Type: Spontaneous
  Country: EU (occurrence: EU)
  Receive Date: 20221013
  Receipt Date: 20250710
  Transmission Date: 20251020
  Serious: Yes (Hospitalization)
  Sender: JAZZ
  Company Number: None

PATIENT
  Age: 2 Year
  Sex: Male
  Weight: 13 kg

DRUGS (2)
  1. CANNABIDIOL [Interacting]
     Active Substance: CANNABIDIOL
     Indication: Infantile spasms
     Dosage: 30 MILLIGRAM, BID
     Route: 048
     Dates: start: 20220827
  2. CLOBAZAM [Interacting]
     Active Substance: CLOBAZAM
     Indication: Infantile spasms
     Dosage: 14 MILLILITER, QD
     Route: 048
     Dates: start: 20220827

REACTIONS (7)
  - Overdose [Recovered/Resolved]
  - Drug interaction [Unknown]
  - Hypotonia [Recovered/Resolved]
  - Somnolence [Recovered/Resolved]
  - Decreased appetite [Unknown]
  - Incorrect dosage administered [Unknown]
  - Off label use [Unknown]

NARRATIVE: CASE EVENT DATE: 20220827
